FAERS Safety Report 25302314 (Version 1)
Quarter: 2025Q2

REPORT INFORMATION
  Report Type: Spontaneous
  Country: BE (occurrence: BE)
  Receive Date: 20250512
  Receipt Date: 20250512
  Transmission Date: 20250716
  Serious: Yes (Other)
  Sender: NOVARTIS
  Company Number: BE-002147023-NVSC2025BE074182

PATIENT
  Age: 76 Year
  Sex: Male

DRUGS (1)
  1. PLUVICTO [Suspect]
     Active Substance: LUTETIUM LU-177 VIPIVOTIDE TETRAXETAN
     Indication: Hormone-refractory prostate cancer
     Route: 065
     Dates: start: 202408

REACTIONS (4)
  - Bone cancer [Unknown]
  - Malignant neoplasm progression [Unknown]
  - Cancer with a high tumour mutational burden [Unknown]
  - Prostatic specific antigen increased [Unknown]
